FAERS Safety Report 13819185 (Version 1)
Quarter: 2017Q3

REPORT INFORMATION
  Report Type: Report from Study
  Country: US (occurrence: US)
  Receive Date: 20170731
  Receipt Date: 20170731
  Transmission Date: 20171127
  Serious: No
  Sender: FDA-Public Use
  Company Number: US-EXELIXIS-CABO-17009181

PATIENT
  Age: 65 Year
  Sex: Male

DRUGS (9)
  1. MYCOPHENOLATE [Concomitant]
     Active Substance: MYCOPHENOLIC ACID
  2. TAMSULOSIN [Concomitant]
     Active Substance: TAMSULOSIN
  3. ASA [Concomitant]
     Active Substance: ASPIRIN
  4. METOPROLOL. [Concomitant]
     Active Substance: METOPROLOL
  5. CABOMETYX [Suspect]
     Active Substance: CABOZANTINIB S-MALATE
     Indication: RENAL CANCER
     Dosage: 60 MG, QD
     Route: 048
     Dates: start: 20170208
  6. TACROLIMUS. [Concomitant]
     Active Substance: TACROLIMUS
  7. LEVOTHYROXINE. [Concomitant]
     Active Substance: LEVOTHYROXINE
  8. DIFLUCAN [Concomitant]
     Active Substance: FLUCONAZOLE
  9. HYDRALAZINE [Concomitant]
     Active Substance: HYDRALAZINE HYDROCHLORIDE

REACTIONS (1)
  - Skin exfoliation [Unknown]

NARRATIVE: CASE EVENT DATE: 20170517
